FAERS Safety Report 9915804 (Version 2)
Quarter: 2015Q4

REPORT INFORMATION
  Report Type: Report from Study
  Country: US (occurrence: US)
  Receive Date: 20140221
  Receipt Date: 20151008
  Transmission Date: 20160305
  Serious: Yes (Other)
  Sender: FDA-Public Use
  Company Number: US-ROCHE-1332795

PATIENT
  Age: 78 Year
  Sex: Male
  Weight: 99.43 kg

DRUGS (20)
  1. LUCENTIS [Suspect]
     Active Substance: RANIBIZUMAB
     Route: 050
     Dates: start: 20120326
  2. AVASTIN [Suspect]
     Active Substance: BEVACIZUMAB
     Indication: NEOVASCULAR AGE-RELATED MACULAR DEGENERATION
     Dosage: OS
     Route: 050
     Dates: start: 20080630
  3. AVASTIN [Suspect]
     Active Substance: BEVACIZUMAB
     Indication: NEOVASCULAR AGE-RELATED MACULAR DEGENERATION
     Dosage: OS
     Route: 050
     Dates: start: 20080728
  4. BENAZEPRIL HYDROCHLORIDE. [Concomitant]
     Active Substance: BENAZEPRIL HYDROCHLORIDE
  5. CLOPIDOGREL [Concomitant]
     Active Substance: CLOPIDOGREL BISULFATE
     Route: 065
  6. LUCENTIS [Suspect]
     Active Substance: RANIBIZUMAB
     Indication: RETINAL OEDEMA
     Route: 050
     Dates: start: 20100830
  7. METFORMIN HYDROCHLORIDE. [Concomitant]
     Active Substance: METFORMIN HYDROCHLORIDE
     Route: 065
  8. LUCENTIS [Suspect]
     Active Substance: RANIBIZUMAB
     Indication: NEOVASCULAR AGE-RELATED MACULAR DEGENERATION
     Route: 050
     Dates: start: 20101108
  9. OCUVITE PRESERVISION [Concomitant]
     Dosage: 2 TABLETS BID
     Route: 065
  10. CLINDAMYCIN HCL [Concomitant]
     Active Substance: CLINDAMYCIN HYDROCHLORIDE
     Route: 048
  11. CRESTOR [Concomitant]
     Active Substance: ROSUVASTATIN CALCIUM
  12. OCUFLOX (UNITED STATES) [Concomitant]
     Dosage: 1 GTT 4 TIMES
     Route: 047
     Dates: start: 20101010, end: 20120123
  13. LUCENTIS [Suspect]
     Active Substance: RANIBIZUMAB
     Indication: VENOUS OCCLUSION
     Route: 050
     Dates: start: 20101004
  14. AMLODIPINE [Concomitant]
     Active Substance: AMLODIPINE BESYLATE
  15. NIFEDIPINE. [Concomitant]
     Active Substance: NIFEDIPINE
     Route: 065
  16. LUCENTIS [Suspect]
     Active Substance: RANIBIZUMAB
     Indication: NEOVASCULAR AGE-RELATED MACULAR DEGENERATION
     Route: 050
     Dates: start: 20111010
  17. FISH OIL [Concomitant]
     Active Substance: FISH OIL
     Dosage: 120-180 MG
     Route: 048
  18. ZYMAR [Concomitant]
     Active Substance: GATIFLOXACIN
     Dosage: OS
     Route: 065
     Dates: start: 20080630, end: 20080825
  19. ASPIRIN. [Concomitant]
     Active Substance: ASPIRIN
  20. NEXIUM [Concomitant]
     Active Substance: ESOMEPRAZOLE MAGNESIUM

REACTIONS (17)
  - Dry eye [Unknown]
  - Retinal disorder [Unknown]
  - Retinal degeneration [Unknown]
  - Pollakiuria [Unknown]
  - Lacrimation increased [Unknown]
  - Micturition urgency [Unknown]
  - Eye oedema [Unknown]
  - Chorioretinal scar [Unknown]
  - Macular scar [Unknown]
  - Hearing impaired [Unknown]
  - Choroidal neovascularisation [Unknown]
  - Pinguecula [Unknown]
  - Blepharitis [Unknown]
  - Blindness [Unknown]
  - Macular degeneration [Unknown]
  - Macular oedema [Unknown]
  - Visual acuity reduced [Unknown]

NARRATIVE: CASE EVENT DATE: 20120604
